FAERS Safety Report 7429437-3 (Version None)
Quarter: 2011Q2

REPORT INFORMATION
  Report Type: 
  Country: None (occurrence: None)
  Receive Date: 20110421
  Receipt Date: 20110420
  Transmission Date: 20111010
  Serious: Yes (Other)
  Sender: FDA-Public Use
  Company Number: US-PFIZER INC-2011086742

PATIENT
  Sex: Female
  Weight: 58.05 kg

DRUGS (7)
  1. VITAMIN B COMPLEX CAP [Concomitant]
     Dosage: UNK
  2. XANAX [Suspect]
     Indication: ANXIETY
     Dosage: 0.25 MG, 2X/DAY
     Route: 048
     Dates: start: 20110101, end: 20110401
  3. CHANTIX [Suspect]
     Indication: SMOKING CESSATION THERAPY
     Dosage: 0.5 MG, 1X/DAY
     Dates: start: 20110214, end: 20110101
  4. XANAX [Suspect]
     Indication: SLEEP DISORDER
  5. ASCORBIC ACID [Concomitant]
     Dosage: UNK
  6. CHANTIX [Suspect]
     Dosage: 1 MG, 2X/DAY
     Route: 048
     Dates: start: 20110101
  7. BIOTIN [Concomitant]
     Dosage: UNK

REACTIONS (2)
  - DYSPNOEA [None]
  - PANIC ATTACK [None]
